FAERS Safety Report 8031008 (Version 9)
Quarter: 2014Q2

REPORT INFORMATION
  Report Type: Spontaneous
  Country: US (occurrence: US)
  Receive Date: 20110712
  Receipt Date: 20140404
  Transmission Date: 20141212
  Serious: Yes (Hospitalization)
  Sender: FDA-Public Use
  Company Number: US-GLAXOSMITHKLINE-A0936221A

PATIENT
  Age: 56 Year
  Sex: Female
  Weight: 70.5 kg

DRUGS (3)
  1. AVANDIA [Suspect]
     Indication: TYPE 2 DIABETES MELLITUS
     Dosage: 4MG TWICE PER DAY
     Route: 048
     Dates: start: 200011, end: 20100910
  2. AVANDAMET [Suspect]
     Indication: TYPE 2 DIABETES MELLITUS
     Route: 048
     Dates: start: 20050126, end: 20060709
  3. ZOCOR [Concomitant]

REACTIONS (4)
  - Angina pectoris [Not Recovered/Not Resolved]
  - Coronary artery disease [Unknown]
  - Ischaemia [Unknown]
  - Angina unstable [Unknown]
